FAERS Safety Report 16964579 (Version 3)
Quarter: 2020Q1

REPORT INFORMATION
  Report Type: Report from Study
  Country: DE (occurrence: DE)
  Receive Date: 20191028
  Receipt Date: 20200124
  Transmission Date: 20200409
  Serious: Yes (Hospitalization)
  Sender: FDA-Public Use
  Company Number: DE-ROCHE-2444157

PATIENT
  Age: 73 Year
  Sex: Female
  Weight: 63 kg

DRUGS (9)
  1. 5-FLUOROURACIL [FLUOROURACIL] [Suspect]
     Active Substance: FLUOROURACIL
     Dosage: DOSE: 400 MG/GM?ON 17/FEB/2014, MOST RECENT DOSE.
     Route: 042
     Dates: start: 20131111
  2. METAMIZOLE [Concomitant]
     Active Substance: METAMIZOLE
  3. PANTOPRAZOLE [Concomitant]
     Active Substance: PANTOPRAZOLE
     Route: 065
  4. BEVACIZUMAB. [Suspect]
     Active Substance: BEVACIZUMAB
     Indication: COLORECTAL CANCER METASTATIC
     Dosage: ON 17/FEB/2014, MOST RECENT DOSE (5 MG/KG).
     Route: 042
     Dates: start: 20131111
  5. 5-FLUOROURACIL [FLUOROURACIL] [Suspect]
     Active Substance: FLUOROURACIL
     Indication: COLORECTAL CANCER METASTATIC
     Dosage: DOSE: 2400 MG/GM?ON 17/FEB/2014, MOST RECENT DOSE.
     Route: 042
     Dates: start: 20131111
  6. DOXAZOSIN [Concomitant]
     Active Substance: DOXAZOSIN MESYLATE
     Route: 065
  7. CALCIUM FOLINATE [Suspect]
     Active Substance: LEUCOVORIN CALCIUM
     Indication: COLORECTAL CANCER METASTATIC
     Dosage: DOSE: 400 MG/GM?ON 17/FEB/2014, MOST RECENT DOSE.
     Route: 042
     Dates: start: 20131111
  8. BISOPROLOL [Concomitant]
     Active Substance: BISOPROLOL
     Route: 065
  9. METFORMIN [Concomitant]
     Active Substance: METFORMIN HYDROCHLORIDE
     Route: 065

REACTIONS (1)
  - Febrile neutropenia [Recovered/Resolved]

NARRATIVE: CASE EVENT DATE: 20140219
